FAERS Safety Report 4622671-7 (Version None)
Quarter: 2005Q1

REPORT INFORMATION
  Report Type: 
  Country: None (occurrence: None)
  Receive Date: 20050330
  Receipt Date: 20050107
  Transmission Date: 20050727
  Serious: No
  Sender: FDA-Public Use
  Company Number: US-BRISTOL-MYERS SQUIBB COMPANY-12818902

PATIENT
  Sex: Male

DRUGS (4)
  1. REYATAZ [Suspect]
     Indication: HIV INFECTION
     Dosage: THERAPY WAS DISCONTINUED.  THERAPY WAS THEN RE-INITIATED ON A TRIAL BASIS AND AGAIN DISCONTINUED.
     Route: 048
     Dates: start: 20041201
  2. NORVIR [Concomitant]
  3. ANTIHEMOPHILIC FACTOR (HUMAN) [Concomitant]
  4. EPZICOM [Concomitant]

REACTIONS (1)
  - HAEMORRHAGE [None]
